FAERS Safety Report 6015086-0 (Version None)
Quarter: 2008Q4

REPORT INFORMATION
  Report Type: 
  Country: None (occurrence: None)
  Receive Date: 20081222
  Receipt Date: 20081211
  Transmission Date: 20090506
  Serious: Yes (Other)
  Sender: FDA-Public Use
  Company Number: GB-JNJFOC-20081003434

PATIENT
  Sex: Male

DRUGS (4)
  1. REMICADE [Suspect]
     Route: 042
  2. REMICADE [Suspect]
     Route: 042
  3. REMICADE [Suspect]
     Indication: CROHN'S DISEASE
     Dosage: 2 INFUSIONS ON  UNKNOWN DATES
     Route: 042
  4. AZATHIOPRINE [Concomitant]

REACTIONS (3)
  - MIOSIS [None]
  - PUPIL FIXED [None]
  - VISUAL IMPAIRMENT [None]
